FAERS Safety Report 7304369-X (Version None)
Quarter: 2011Q1

REPORT INFORMATION
  Report Type: 
  Country: None (occurrence: None)
  Receive Date: 20110221
  Receipt Date: 20110208
  Transmission Date: 20110831
  Serious: Yes (Hospitalization)
  Sender: FDA-Public Use
  Company Number: US-ELI_LILLY_AND_COMPANY-US201010002137

PATIENT
  Age: 83 Year
  Sex: Female

DRUGS (2)
  1. FORTEO [Suspect]
     Dosage: 20 UG, DAILY (1/D)
  2. FORTEO [Suspect]
     Indication: OSTEOPOROSIS
     Dosage: 20 UG, DAILY (1/D)
     Dates: start: 20101006

REACTIONS (15)
  - ABDOMINAL DISCOMFORT [None]
  - ASTHENIA [None]
  - DIZZINESS POSTURAL [None]
  - COUGH [None]
  - BLOOD PRESSURE DECREASED [None]
  - ABDOMINAL PAIN [None]
  - ARTHRALGIA [None]
  - HOSPITALISATION [None]
  - EMOTIONAL DISORDER [None]
  - ABDOMINAL HERNIA [None]
  - FLATULENCE [None]
  - AMNESIA [None]
  - HEART RATE INCREASED [None]
  - BODY TEMPERATURE DECREASED [None]
  - WEIGHT DECREASED [None]
